FAERS Safety Report 6920018-4 (Version None)
Quarter: 2010Q3

REPORT INFORMATION
  Report Type: 
  Country: None (occurrence: None)
  Receive Date: 20100811
  Receipt Date: 20100806
  Transmission Date: 20110219
  Serious: No
  Sender: FDA-Public Use
  Company Number: US-ROXANE LABORATORIES, INC.-2010-RO-00864RO

PATIENT
  Age: 52 Year
  Sex: Male
  Weight: 84 kg

DRUGS (3)
  1. METHADONE HCL [Suspect]
     Indication: PAIN
     Dosage: 80 MG
     Route: 048
  2. METHADONE HCL [Suspect]
     Dosage: 170 MG
     Route: 048
  3. PREDNISONE TAB [Suspect]
     Indication: SYSTEMIC LUPUS ERYTHEMATOSUS

REACTIONS (6)
  - ARTHRALGIA [None]
  - ASTHENIA [None]
  - DEPRESSED MOOD [None]
  - DRUG INEFFECTIVE [None]
  - DRUG TOLERANCE [None]
  - INTENTIONAL DRUG MISUSE [None]
